FAERS Safety Report 16252148 (Version 1)
Quarter: 2019Q2

REPORT INFORMATION
  Report Type: Spontaneous
  Country: GB (occurrence: GB)
  Receive Date: 20190429
  Receipt Date: 20190429
  Transmission Date: 20190711
  Serious: Yes (Disabling)
  Sender: FDA-Public Use
  Company Number: GB-TEVA-2019-GB-1042255

PATIENT
  Age: 58 Year
  Sex: Female
  Weight: 67 kg

DRUGS (3)
  1. GABAPENTIN. [Suspect]
     Active Substance: GABAPENTIN
  2. AMITRIPTYLINE HYDROCHLORIDE. [Concomitant]
     Active Substance: AMITRIPTYLINE HYDROCHLORIDE
     Dosage: 2 AT NIGHT INCREASING TO 3 AFTER 2 WEEKS
  3. NAPROXEN. [Concomitant]
     Active Substance: NAPROXEN
     Dosage: 2 MILLIGRAM DAILY;

REACTIONS (1)
  - Palpitations [Recovered/Resolved]
